FAERS Safety Report 18201103 (Version 3)
Quarter: 2020Q3

REPORT INFORMATION
  Report Type: Other
  Country: IT (occurrence: IT)
  Receive Date: 20200827
  Receipt Date: 20200924
  Transmission Date: 20201103
  Serious: Yes (Death)
  Sender: FDA-Public Use
  Company Number: IT-ACCORD-197504

PATIENT
  Age: 72 Year
  Sex: Male

DRUGS (8)
  1. LUVION [Concomitant]
     Route: 042
     Dates: start: 20200727, end: 20200729
  2. ATORVASTATIN [Concomitant]
     Active Substance: ATORVASTATIN
     Route: 048
  3. PANTORC [Concomitant]
     Active Substance: PANTOPRAZOLE SODIUM
     Route: 048
  4. EUTIROX [Concomitant]
     Active Substance: LEVOTHYROXINE SODIUM
     Route: 048
  5. FUROSEMIDE. [Concomitant]
     Active Substance: FUROSEMIDE
     Route: 042
     Dates: start: 20200727, end: 20200729
  6. QUETIAPINE. [Suspect]
     Active Substance: QUETIAPINE
     Indication: PRODUCT USED FOR UNKNOWN INDICATION
     Route: 048
  7. TEXTAZO [Concomitant]
     Active Substance: PIPERACILLIN SODIUM\TAZOBACTAM SODIUM
     Dosage: 4G + 0.5 G
     Route: 042
     Dates: start: 20200728, end: 20200729
  8. CARDICOR [Concomitant]
     Active Substance: BISOPROLOL
     Route: 048

REACTIONS (3)
  - Bradycardia [Fatal]
  - Electrocardiogram QT prolonged [Fatal]
  - Electrocardiogram QRS complex abnormal [Fatal]

NARRATIVE: CASE EVENT DATE: 20200728
